FAERS Safety Report 5853963-1 (Version None)
Quarter: 2008Q3

REPORT INFORMATION
  Report Type: 
  Country: None (occurrence: None)
  Receive Date: 20080822
  Receipt Date: 20080815
  Transmission Date: 20090109
  Serious: Yes (Hospitalization)
  Sender: FDA-Public Use
  Company Number: B0534128A

PATIENT
  Sex: Male

DRUGS (10)
  1. DARAPRIM [Suspect]
     Dosage: 75MG PER DAY
     Route: 048
     Dates: start: 20080719
  2. RIFAMPICIN [Suspect]
     Route: 048
     Dates: start: 20080417
  3. SULFADIAZINE [Suspect]
     Dosage: 1500MG FOUR TIMES PER DAY
     Route: 048
     Dates: start: 20080719
  4. KALETRA [Concomitant]
     Route: 048
     Dates: start: 20080626, end: 20080730
  5. TRUVADA [Concomitant]
     Route: 048
     Dates: start: 20080626, end: 20080730
  6. RIMIFON [Concomitant]
     Dosage: 400MG PER DAY
     Route: 048
     Dates: start: 20080501
  7. MYAMBUTOL [Concomitant]
     Dosage: 400MG PER DAY
     Dates: start: 20080729, end: 20080730
  8. AVELOX [Concomitant]
     Route: 048
     Dates: start: 20080729, end: 20080730
  9. MYCOBUTIN [Concomitant]
     Route: 048
     Dates: start: 20080625, end: 20080728
  10. LEUCOVORIN CALCIUM [Concomitant]
     Dosage: 15MG PER DAY
     Route: 048
     Dates: start: 20080719

REACTIONS (2)
  - GRAND MAL CONVULSION [None]
  - HEPATIC ENZYME INCREASED [None]
